FAERS Safety Report 4713266-5 (Version None)
Quarter: 2005Q3

REPORT INFORMATION
  Report Type: 
  Country: None (occurrence: None)
  Receive Date: 20050701
  Receipt Date: 20040622
  Transmission Date: 20060218
  Serious: Yes (Hospitalization, Other)
  Sender: FDA-Public Use
  Company Number: US-SHR-03-000667

PATIENT
  Age: 20 Year
  Sex: Female

DRUGS (2)
  1. YASMIN [Suspect]
     Dosage: ORAL
     Route: 048
     Dates: start: 20020101
  2. TEGRETOL [Concomitant]

REACTIONS (1)
  - DEEP VEIN THROMBOSIS [None]
